FAERS Safety Report 9015833 (Version 2)
Quarter: 2013Q2

REPORT INFORMATION
  Report Type: Spontaneous
  Country: US (occurrence: US)
  Receive Date: 20130116
  Receipt Date: 20130417
  Transmission Date: 20140414
  Serious: No
  Sender: FDA-Public Use
  Company Number: US-BAUSCH-BL-2012-001266

PATIENT
  Age: 72 Year
  Sex: Male

DRUGS (1)
  1. DORZOLAMIDE HYDROCHLORIDE OPHTHALMIC SOLUTION 2% [Suspect]
     Indication: GLAUCOMA
     Dosage: ONE DROP IN EACH EYE, THREE TIMES DAILY
     Route: 047
     Dates: start: 201209

REACTIONS (1)
  - Eye irritation [Recovered/Resolved]
